FAERS Safety Report 14435638 (Version 7)
Quarter: 2022Q1

REPORT INFORMATION
  Report Type: Spontaneous
  Country: DE (occurrence: DE)
  Receive Date: 20180125
  Receipt Date: 20220118
  Transmission Date: 20220423
  Serious: Yes (Death, Life-Threatening, Hospitalization, Disabling, Other)
  Sender: FDA-Public Use
  Company Number: DE-EMA-DD-20180108-PAGRAHARIP-181458

PATIENT
  Age: 80 Year
  Sex: Female

DRUGS (8)
  1. CLOPIDOGREL [Suspect]
     Active Substance: CLOPIDOGREL BISULFATE
     Indication: Anticoagulant therapy
     Dosage: UNK
     Route: 065
  2. CLOPIDOGREL [Suspect]
     Active Substance: CLOPIDOGREL BISULFATE
     Indication: Coronary arterial stent insertion
  3. ELIQUIS [Suspect]
     Active Substance: APIXABAN
     Indication: Cerebrovascular accident prophylaxis
     Dosage: UNK
     Route: 065
  4. ELIQUIS [Suspect]
     Active Substance: APIXABAN
     Indication: Coronary arterial stent insertion
  5. ELIQUIS [Suspect]
     Active Substance: APIXABAN
     Indication: Anticoagulant therapy
  6. ASPIRIN [Suspect]
     Active Substance: ASPIRIN
     Indication: Coronary arterial stent insertion
     Dosage: UNK
     Route: 065
  7. ASPIRIN [Suspect]
     Active Substance: ASPIRIN
     Indication: Atrial fibrillation
  8. ASPIRIN [Suspect]
     Active Substance: ASPIRIN
     Indication: Anticoagulant therapy

REACTIONS (14)
  - Anaemia [Fatal]
  - Septic shock [Fatal]
  - Muscle abscess [Fatal]
  - Osteomyelitis [Fatal]
  - Rectal haemorrhage [Fatal]
  - Diverticulitis [Fatal]
  - Diverticulum intestinal haemorrhagic [Unknown]
  - Multiple organ dysfunction syndrome [Fatal]
  - Osteonecrosis [Fatal]
  - Gastrointestinal oedema [Unknown]
  - Anal stenosis [Fatal]
  - Product use in unapproved indication [Unknown]
  - Anal haemorrhage [Fatal]
  - Blood lactate dehydrogenase increased [Unknown]
